FAERS Safety Report 18202188 (Version 1)
Quarter: 2020Q3

REPORT INFORMATION
  Report Type: Spontaneous
  Country: US (occurrence: US)
  Receive Date: 20200827
  Receipt Date: 20200827
  Transmission Date: 20201103
  Serious: No
  Sender: FDA-Public Use
  Company Number: US-PFIZER INC-2020329627

PATIENT
  Age: 55 Year
  Sex: Male

DRUGS (1)
  1. DEPO?TESTOSTERONE [Suspect]
     Active Substance: TESTOSTERONE CYPIONATE
     Dosage: 200 MG/ML WITH A 10ML VIAL

REACTIONS (2)
  - Therapeutic response unexpected [Not Recovered/Not Resolved]
  - Cardiac output increased [Not Recovered/Not Resolved]
